FAERS Safety Report 19270304 (Version 7)
Quarter: 2025Q2

REPORT INFORMATION
  Report Type: Report from Study
  Country: US (occurrence: US)
  Receive Date: 20210518
  Receipt Date: 20250407
  Transmission Date: 20250716
  Serious: Yes (Other)
  Sender: TAKEDA
  Company Number: US-TAKEDA-2021TUS029781

PATIENT
  Sex: Male

DRUGS (1)
  1. VEDOLIZUMAB [Suspect]
     Active Substance: VEDOLIZUMAB
     Indication: Crohn^s disease

REACTIONS (12)
  - Crohn^s disease [Unknown]
  - Diabetes mellitus [Unknown]
  - Anal stenosis [Unknown]
  - Anal fistula [Unknown]
  - Osteoporosis [Unknown]
  - Vitamin D deficiency [Unknown]
  - Product dose omission issue [Unknown]
  - Osteopenia [Unknown]
  - Cuffitis [Unknown]
  - Pouchitis [Unknown]
  - Rectal tenesmus [Unknown]
  - Abdominal distension [Unknown]
